FAERS Safety Report 18502617 (Version 1)
Quarter: 2020Q4

REPORT INFORMATION
  Report Type: Other
  Country: ES (occurrence: ES)
  Receive Date: 20201113
  Receipt Date: 20201113
  Transmission Date: 20210114
  Serious: Yes (Other)
  Sender: FDA-Public Use
  Company Number: ES-COLLEGIUM PHARMACEUTICAL, INC.-2020CGM00376

PATIENT
  Age: 78 Year
  Sex: Male

DRUGS (10)
  1. SINTROM [Concomitant]
     Active Substance: ACENOCOUMAROL
  2. PERMIXON [Concomitant]
     Active Substance: HERBALS\SAW PALMETTO
  3. DIGOXINA [Concomitant]
     Active Substance: DIGOXIN
  4. DILUTOL [TORASEMIDE] [Concomitant]
  5. TELMISARTAN. [Concomitant]
     Active Substance: TELMISARTAN
  6. ARROX [MELOXICAM] [Concomitant]
  7. PANTOPRAZOLE [Concomitant]
     Active Substance: PANTOPRAZOLE
  8. ORFIDAL [Concomitant]
     Active Substance: LORAZEPAM
  9. NITROPLAST TRANSDERMAL PATCH [Concomitant]
  10. NUCYNTA ER [Suspect]
     Active Substance: TAPENTADOL HYDROCHLORIDE
     Indication: OSTEOARTHRITIS
     Dosage: 50 MG, 2X/DAY (EVERY 12 HOURS)
     Route: 048
     Dates: start: 20201002, end: 20201006

REACTIONS (5)
  - Malaise [Recovered/Resolved]
  - Dizziness [Recovered/Resolved]
  - Vision blurred [Recovered/Resolved]
  - Anxiety [Recovered/Resolved]
  - Constipation [Recovering/Resolving]

NARRATIVE: CASE EVENT DATE: 20201002
